FAERS Safety Report 18323378 (Version 1)
Quarter: 2020Q3

REPORT INFORMATION
  Report Type: Spontaneous
  Country: US (occurrence: US)
  Receive Date: 20200929
  Receipt Date: 20200929
  Transmission Date: 20201103
  Serious: Yes (Other)
  Sender: FDA-Public Use
  Company Number: None

PATIENT
  Age: 86 Year
  Sex: Female
  Weight: 61.2 kg

DRUGS (4)
  1. REMDESIVIR. [Suspect]
     Active Substance: REMDESIVIR
     Indication: CORONAVIRUS INFECTION
     Route: 042
     Dates: start: 20200603, end: 20200607
  2. ASPIRIN 81MG [Concomitant]
     Active Substance: ASPIRIN
  3. VITAMIN C 500MG [Concomitant]
  4. ZINC 50MG [Concomitant]

REACTIONS (2)
  - Mucous stools [None]
  - Alopecia [None]

NARRATIVE: CASE EVENT DATE: 20200603
